FAERS Safety Report 5332411-4 (Version None)
Quarter: 2007Q2

REPORT INFORMATION
  Report Type: 
  Country: None (occurrence: None)
  Receive Date: 20070523
  Receipt Date: 20070514
  Transmission Date: 20071010
  Serious: Yes (Hospitalization)
  Sender: FDA-Public Use
  Company Number: FR-ABBOTT-07P-056-0368153-00

PATIENT
  Age: 78 Year
  Sex: Female
  Weight: 60 kg

DRUGS (2)
  1. TARKA [Suspect]
     Indication: HYPERTENSION
     Route: 048
     Dates: end: 20070131
  2. LERCANIDIPINE [Concomitant]
     Indication: HYPERTENSION
     Dates: start: 20070131

REACTIONS (9)
  - BACK PAIN [None]
  - DRUG INEFFECTIVE [None]
  - GASTROENTERITIS [None]
  - GENERAL PHYSICAL HEALTH DETERIORATION [None]
  - HEADACHE [None]
  - PROTEINURIA [None]
  - PYREXIA [None]
  - RENAL TUBULAR NECROSIS [None]
  - WEIGHT DECREASED [None]
